FAERS Safety Report 14184671 (Version 2)
Quarter: 2017Q4

REPORT INFORMATION
  Report Type: Report from Study
  Country: CR (occurrence: CR)
  Receive Date: 20171114
  Receipt Date: 20171114
  Transmission Date: 20180321
  Serious: Yes (Other)
  Sender: FDA-Public Use
  Company Number: PHHY2017CR158488

PATIENT
  Sex: Female
  Weight: 89 kg

DRUGS (4)
  1. IRBESARTAN. [Suspect]
     Active Substance: IRBESARTAN
     Dosage: 150 MG, QD
     Route: 065
  2. IRBESARTAN. [Suspect]
     Active Substance: IRBESARTAN
     Indication: PRODUCT USED FOR UNKNOWN INDICATION
     Dosage: 300 MG, UNK
     Route: 065
  3. SANDOSTATIN LAR DEPOT [Suspect]
     Active Substance: OCTREOTIDE ACETATE
     Indication: ACROMEGALY
     Dosage: 40 MG, QMO (20 MG 2 INJECTIONS EVERY MONTH)
     Route: 065
     Dates: start: 2010
  4. TEGRETOL [Suspect]
     Active Substance: CARBAMAZEPINE
     Indication: PRODUCT USED FOR UNKNOWN INDICATION
     Dosage: 8 DF, QD (3 TABLET IN A.M.; 3 TABLETS AT P.M AND 2 TABLET AT NIGHT)
     Route: 048

REACTIONS (4)
  - Blood pressure decreased [Unknown]
  - Glucose tolerance impaired [Unknown]
  - Volvulus [Unknown]
  - Trigeminal neuralgia [Unknown]
